FAERS Safety Report 12982614 (Version 1)
Quarter: 2016Q4

REPORT INFORMATION
  Report Type: Spontaneous
  Country: US (occurrence: US)
  Receive Date: 20161129
  Receipt Date: 20161129
  Transmission Date: 20170207
  Serious: Yes (Other)
  Sender: FDA-Public Use
  Company Number: None

PATIENT
  Age: 54 Year
  Sex: Female
  Weight: 86.4 kg

DRUGS (1)
  1. PAROXETINE. [Suspect]
     Active Substance: PAROXETINE
     Indication: DEPRESSION
     Dates: start: 20161121, end: 20161128

REACTIONS (3)
  - Anxiety [None]
  - Thinking abnormal [None]
  - Product substitution issue [None]

NARRATIVE: CASE EVENT DATE: 20161128
